FAERS Safety Report 14646731 (Version 3)
Quarter: 2021Q2

REPORT INFORMATION
  Report Type: Spontaneous
  Country: US (occurrence: US)
  Receive Date: 20180316
  Receipt Date: 20210527
  Transmission Date: 20210716
  Serious: No
  Sender: FDA-Public Use
  Company Number: US-ASTRAZENECA-2018SE20597

PATIENT
  Sex: Male

DRUGS (2)
  1. BYETTA [Suspect]
     Active Substance: EXENATIDE
     Route: 065
  2. BYDUREON [Suspect]
     Active Substance: EXENATIDE
     Route: 065

REACTIONS (3)
  - Weight decreased [Unknown]
  - Needle issue [Unknown]
  - Wrong technique in product usage process [Unknown]
